FAERS Safety Report 13302109 (Version 1)
Quarter: 2017Q1

REPORT INFORMATION
  Report Type: Spontaneous
  Country: US (occurrence: US)
  Receive Date: 20170307
  Receipt Date: 20170307
  Transmission Date: 20170428
  Serious: Yes (Hospitalization)
  Sender: FDA-Public Use
  Company Number: None

PATIENT
  Age: 72 Year
  Sex: Male
  Weight: 102.96 kg

DRUGS (1)
  1. METHOTREXATE. [Suspect]
     Active Substance: METHOTREXATE
     Dates: end: 20170223

REACTIONS (16)
  - Renal cyst [None]
  - Vomiting [None]
  - Hypertension [None]
  - Blood alkaline phosphatase increased [None]
  - Alanine aminotransferase increased [None]
  - Haematocrit decreased [None]
  - Agitation [None]
  - Haemoglobin decreased [None]
  - Continuous haemodiafiltration [None]
  - Disorientation [None]
  - Blood glucose increased [None]
  - Tachycardia [None]
  - Blood calcium decreased [None]
  - Renal failure [None]
  - Platelet count decreased [None]
  - Aspartate aminotransferase increased [None]

NARRATIVE: CASE EVENT DATE: 20170225
